FAERS Safety Report 8230307-1 (Version None)
Quarter: 2012Q1

REPORT INFORMATION
  Report Type: 
  Country: None (occurrence: None)
  Receive Date: 20120323
  Receipt Date: 20120316
  Transmission Date: 20120608
  Serious: Yes (Hospitalization)
  Sender: FDA-Public Use
  Company Number: KR-BAYER-2012-025793

PATIENT
  Sex: Female

DRUGS (3)
  1. HYPERTENSION (HTN)- MEDICATION [Suspect]
     Indication: INFLUENZA LIKE ILLNESS
  2. GLUCOBAY [Suspect]
     Indication: NASOPHARYNGITIS
     Dosage: UNK
     Route: 048
     Dates: start: 20100101, end: 20100101
  3. SEVERAL DIABETICS [Suspect]
     Indication: INFLUENZA LIKE ILLNESS

REACTIONS (2)
  - HYPOGLYCAEMIA [None]
  - NEUROPATHY PERIPHERAL [None]
